FAERS Safety Report 18431095 (Version 2)
Quarter: 2020Q4

REPORT INFORMATION
  Report Type: Report from Study
  Country: DE (occurrence: DE)
  Receive Date: 20201027
  Receipt Date: 20201112
  Transmission Date: 20210114
  Serious: Yes (Life-Threatening, Hospitalization, Other)
  Sender: FDA-Public Use
  Company Number: DE-TEVA-2020-DE-1841130

PATIENT
  Age: 65 Year
  Sex: Male
  Weight: 80 kg

DRUGS (19)
  1. METHYLPREDNISOLONE. [Suspect]
     Active Substance: METHYLPREDNISOLONE
     Dosage: 125 MG
     Route: 041
     Dates: start: 20180719, end: 201807
  2. METHYLPREDNISOLONE. [Suspect]
     Active Substance: METHYLPREDNISOLONE
     Dosage: 8 MG
     Route: 048
     Dates: start: 20180812, end: 20180814
  3. AMLODIPINE [Concomitant]
     Active Substance: AMLODIPINE BESYLATE
     Indication: HYPERTENSION
     Dosage: 5 MILLIGRAM DAILY;
     Route: 048
     Dates: start: 201807
  4. PANTOPRAZOLE [Concomitant]
     Active Substance: PANTOPRAZOLE
     Indication: PROPHYLAXIS AGAINST GASTROINTESTINAL ULCER
     Dosage: 40 MILLIGRAM DAILY;
     Route: 048
     Dates: start: 20180718, end: 20181030
  5. VEMURAFENIB. [Suspect]
     Active Substance: VEMURAFENIB
     Indication: MALIGNANT MELANOMA
     Dosage: 240 MG
     Route: 048
     Dates: start: 20181016, end: 20181023
  6. METHYLPREDNISOLONE. [Suspect]
     Active Substance: METHYLPREDNISOLONE
     Dosage: 60 MG
     Route: 048
     Dates: start: 20180802, end: 20180802
  7. VEMURAFENIB. [Suspect]
     Active Substance: VEMURAFENIB
     Dosage: 1920 MILLIGRAM DAILY;
     Route: 048
     Dates: start: 20180707, end: 20180716
  8. AMLODIPINE [Concomitant]
     Active Substance: AMLODIPINE BESYLATE
     Dosage: 5 MILLIGRAM DAILY;
     Route: 048
     Dates: start: 201711, end: 20180718
  9. METHYLPREDNISOLONE. [Suspect]
     Active Substance: METHYLPREDNISOLONE
     Dosage: 250 MG
     Route: 040
     Dates: start: 20180718, end: 20180718
  10. METHYLPREDNISOLONE. [Suspect]
     Active Substance: METHYLPREDNISOLONE
     Dosage: 4 MG
     Route: 048
     Dates: start: 20180815, end: 20180817
  11. VEMURAFENIB. [Suspect]
     Active Substance: VEMURAFENIB
     Route: 048
     Dates: start: 20180823, end: 20180823
  12. DELIX [RAMIPRIL] [Concomitant]
     Active Substance: RAMIPRIL
     Indication: HYPERTENSION
     Dosage: 10 MILLIGRAM DAILY;
     Route: 048
     Dates: start: 201711, end: 20180718
  13. RAMIPRIL. [Concomitant]
     Active Substance: RAMIPRIL
     Indication: HYPERTENSION
     Dosage: 5 MILLIGRAM DAILY;
     Route: 048
     Dates: start: 201807
  14. METHYLPREDNISOLONE. [Suspect]
     Active Substance: METHYLPREDNISOLONE
     Indication: DERMATITIS ALLERGIC
     Route: 041
     Dates: start: 201807, end: 20180801
  15. COBIMETINIB. [Suspect]
     Active Substance: COBIMETINIB
     Indication: MALIGNANT MELANOMA
     Dosage: 60 MILLIGRAM DAILY;
     Route: 048
     Dates: start: 20180709, end: 20180717
  16. COBIMETINIB. [Suspect]
     Active Substance: COBIMETINIB
     Dosage: 60 MILLIGRAM DAILY;
     Route: 048
     Dates: start: 20180707, end: 20180716
  17. CLEXANE [Concomitant]
     Active Substance: ENOXAPARIN SODIUM
     Indication: THROMBOSIS PROPHYLAXIS
     Dosage: .4 IU (INTERNATIONAL UNIT) DAILY;
     Route: 058
     Dates: start: 201807, end: 201808
  18. HEPARIN [Concomitant]
     Active Substance: HEPARIN SODIUM
     Indication: THROMBOSIS PROPHYLAXIS
     Dosage: 15000 IU (INTERNATIONAL UNIT) DAILY;
     Route: 058
     Dates: start: 201807, end: 201807
  19. IRENAT [Concomitant]
     Active Substance: SODIUM PERCHLORATE
     Dosage: 60 GTT DAILY;  (DROPCOMPUTED TOMOGRAPHY WITH CONTRAST AGENT)
     Route: 048
     Dates: start: 20180827, end: 20180830

REACTIONS (44)
  - Urinary tract disorder [Recovered/Resolved]
  - Skin infection [Recovered/Resolved]
  - Chills [Unknown]
  - Pneumonia [Recovered/Resolved]
  - Candida infection [Recovered/Resolved]
  - Oral fungal infection [Recovered/Resolved]
  - Diarrhoea [Recovered/Resolved]
  - Rash [Recovered/Resolved]
  - Haematuria [Unknown]
  - Acute kidney injury [Recovered/Resolved]
  - Dermatitis allergic [Recovered/Resolved]
  - Hypokalaemia [Recovered/Resolved]
  - Rash [Recovered/Resolved]
  - Aspergillus test positive [Recovering/Resolving]
  - Pyelocaliectasis [Recovered/Resolved]
  - Urinary tract disorder [Recovered/Resolved]
  - Malaise [Recovered/Resolved]
  - Leukocyturia [Unknown]
  - Oral bacterial infection [Unknown]
  - Balanoposthitis [Recovered/Resolved]
  - Pruritus [Recovered/Resolved]
  - Vomiting [Recovered/Resolved]
  - Skin papilloma [Unknown]
  - Pyrexia [Recovered/Resolved]
  - Urinary tract infection [Recovered/Resolved with Sequelae]
  - Blood creatinine increased [Recovered/Resolved]
  - Escherichia infection [Recovered/Resolved]
  - Stevens-Johnson syndrome [Recovered/Resolved]
  - Hyperthyroidism [Not Recovered/Not Resolved]
  - Chills [Recovered/Resolved]
  - Catheter removal [Recovered/Resolved]
  - Laryngitis [Recovered/Resolved]
  - Sunburn [Recovered/Resolved]
  - Staphylococcus test positive [Recovered/Resolved]
  - Rash [Recovered/Resolved]
  - Hypomagnesaemia [Unknown]
  - Pyrexia [Recovered/Resolved]
  - Myalgia [Unknown]
  - Cough [Recovered/Resolved]
  - Vomiting [Recovered/Resolved]
  - Oral candidiasis [Recovered/Resolved]
  - Pyrexia [Recovered/Resolved]
  - Hypocalcaemia [Recovering/Resolving]
  - Blister [Recovered/Resolved]

NARRATIVE: CASE EVENT DATE: 20180712
